FAERS Safety Report 9559617 (Version 1)
Quarter: 2013Q3

REPORT INFORMATION
  Report Type: Spontaneous
  Country: US (occurrence: None)
  Receive Date: 20130924
  Receipt Date: 20130924
  Transmission Date: 20140515
  Serious: Yes (Hospitalization)
  Sender: FDA-Public Use
  Company Number: 13AE017

PATIENT
  Sex: Female

DRUGS (2)
  1. EQUATE BISACODYL [Suspect]
     Indication: COLONOSCOPY
     Dosage: 2 TABLETS BY MOUTH?
     Route: 048
     Dates: start: 20130917
  2. MAGNESIUM SULFATE [Concomitant]

REACTIONS (1)
  - Dyspnoea [None]
